FAERS Safety Report 10348799 (Version 2)
Quarter: 2014Q3

REPORT INFORMATION
  Report Type: Spontaneous
  Country: GB (occurrence: None)
  Receive Date: 20140725
  Receipt Date: 20140731
  Transmission Date: 20150326
  Serious: Yes (Life-Threatening, Hospitalization, Other)
  Sender: FDA-Public Use
  Company Number: AUR-APL-2014-07886

PATIENT
  Age: 68 Year
  Sex: Female

DRUGS (3)
  1. SIMVASTATIN. [Suspect]
     Active Substance: SIMVASTATIN
     Indication: PRODUCT USED FOR UNKNOWN INDICATION
     Dates: start: 2008, end: 201405
  2. WARFARIN (WARFARIN) [Suspect]
     Active Substance: WARFARIN
     Indication: PRODUCT USED FOR UNKNOWN INDICATION
  3. AMLODIPINE [Suspect]
     Active Substance: AMLODIPINE BESYLATE
     Indication: PRODUCT USED FOR UNKNOWN INDICATION
     Dates: start: 201201

REACTIONS (19)
  - Dyspnoea [None]
  - Malaise [None]
  - Drug interaction [None]
  - Cardiac arrest [None]
  - Hyperhidrosis [None]
  - Cardiac failure [None]
  - Fatigue [None]
  - Atrial fibrillation [None]
  - Lower respiratory tract infection [None]
  - Cystitis [None]
  - International normalised ratio fluctuation [None]
  - Gait disturbance [None]
  - Cough [None]
  - Bladder disorder [None]
  - Arthralgia [None]
  - Back pain [None]
  - Pain in extremity [None]
  - Asthenia [None]
  - Anger [None]

NARRATIVE: CASE EVENT DATE: 201201
